FAERS Safety Report 4759619-0 (Version None)
Quarter: 2005Q3

REPORT INFORMATION
  Report Type: 
  Country: None (occurrence: None)
  Receive Date: 20050901
  Receipt Date: 20050413
  Transmission Date: 20060218
  Serious: Yes (Hospitalization)
  Sender: FDA-Public Use
  Company Number: US-MERCK-0504USA02006

PATIENT
  Age: 60 Year
  Sex: Male
  Weight: 127 kg

DRUGS (3)
  1. VIOXX [Suspect]
     Indication: ARTHRITIS
     Route: 048
     Dates: start: 20010726, end: 20040801
  2. NASACORT [Concomitant]
     Route: 065
  3. ALTACE [Concomitant]
     Indication: HYPERTENSION
     Route: 065
     Dates: start: 20030101, end: 20040101

REACTIONS (42)
  - ALVEOLITIS ALLERGIC [None]
  - ANGINA UNSTABLE [None]
  - BLOOD PRESSURE INCREASED [None]
  - BUNDLE BRANCH BLOCK RIGHT [None]
  - CARDIAC FAILURE CONGESTIVE [None]
  - CHEST DISCOMFORT [None]
  - CHEST PAIN [None]
  - CHOLELITHIASIS [None]
  - CORONARY ARTERY DISEASE [None]
  - CORONARY ARTERY STENOSIS [None]
  - DIARRHOEA [None]
  - DIASTOLIC DYSFUNCTION [None]
  - DIZZINESS [None]
  - DRUG INEFFECTIVE [None]
  - DYSPNOEA [None]
  - DYSPNOEA EXERTIONAL [None]
  - EPIGASTRIC DISCOMFORT [None]
  - EXERCISE TOLERANCE DECREASED [None]
  - FALL [None]
  - FATIGUE [None]
  - FLUID OVERLOAD [None]
  - HAEMATOMA [None]
  - HYPERLIPIDAEMIA [None]
  - HYPOACUSIS [None]
  - IRRITABLE BOWEL SYNDROME [None]
  - JOINT CREPITATION [None]
  - LIMB INJURY [None]
  - MYALGIA [None]
  - MYOCARDIAL INFARCTION [None]
  - OEDEMA PERIPHERAL [None]
  - PALPITATIONS [None]
  - PANIC REACTION [None]
  - PROSTATITIS [None]
  - RASH [None]
  - RESPIRATORY TRACT INFECTION [None]
  - RESPIRATORY TRACT INFECTION VIRAL [None]
  - RHINITIS ALLERGIC [None]
  - SINUS BRADYCARDIA [None]
  - STRESS [None]
  - VENTRICULAR EXTRASYSTOLES [None]
  - VERTIGO [None]
  - WEIGHT INCREASED [None]
